FAERS Safety Report 9890822 (Version 2)
Quarter: 2014Q1

REPORT INFORMATION
  Report Type: Report from Study
  Country: NL (occurrence: ES)
  Receive Date: 20140212
  Receipt Date: 20140212
  Transmission Date: 20141002
  Serious: Yes (Hospitalization, Other)
  Sender: FDA-Public Use
  Company Number: ES-ASTELLAS-2013EU011214

PATIENT
  Age: 77 Year
  Sex: Male

DRUGS (2)
  1. ENZALUTAMIDE [Suspect]
     Dosage: 40 MG, QID
     Route: 048
     Dates: start: 20130308, end: 20130715
  2. PANTOPRAZOL [Concomitant]
     Dosage: 40 MG, UNKNOWN/D
     Route: 065

REACTIONS (5)
  - Malaise [Unknown]
  - Subdural haematoma [Unknown]
  - Urosepsis [Unknown]
  - Anaemia [Unknown]
  - Syncope [Unknown]
